FAERS Safety Report 16551171 (Version 1)
Quarter: 2019Q3

REPORT INFORMATION
  Report Type: Spontaneous
  Country: DE (occurrence: DE)
  Receive Date: 20190710
  Receipt Date: 20190710
  Transmission Date: 20191004
  Serious: Yes (Hospitalization)
  Sender: FDA-Public Use
  Company Number: DE-ACCORD-137830

PATIENT
  Age: 62 Year
  Sex: Male
  Weight: 80 kg

DRUGS (18)
  1. PANTOPRAZOLE [Concomitant]
     Active Substance: PANTOPRAZOLE
     Dosage: 40 MG, 1-0-0,
     Route: 048
  2. ACETYLSALICYLIC ACID [Concomitant]
     Active Substance: ASPIRIN
     Dosage: 100 MG, 1-0-0
     Route: 048
  3. EMSER SALT [Concomitant]
     Dosage: 58.75 MG, 1-1-1, METERED DOSE INHALER
     Route: 048
  4. QUETIAPINE/QUETIAPINE FUMARATE [Concomitant]
     Dosage: 100 MG, 0-0-2
     Route: 048
  5. RAMIPRIL. [Suspect]
     Active Substance: RAMIPRIL
     Indication: PRODUCT USED FOR UNKNOWN INDICATION
     Route: 048
  6. AMLODIPINE [Concomitant]
     Active Substance: AMLODIPINE BESYLATE
     Dosage: 5 MG, 1-0-1
     Route: 048
  7. CLONIDINE. [Concomitant]
     Active Substance: CLONIDINE
     Dosage: 0.25 MG, 1-0-0, SUSTAINED-RELEASE CAPSULES
     Route: 048
  8. METAMIZOLE SODIUM [Concomitant]
     Active Substance: METAMIZOLE SODIUM
     Dosage: 500 MG/ML, 30-30-30-30,DROPS
     Route: 048
  9. LORAZEPAM. [Concomitant]
     Active Substance: LORAZEPAM
     Dosage: 1 MG,
     Route: 048
  10. LINEZOLID. [Concomitant]
     Active Substance: LINEZOLID
     Dosage: 600 MG, 1-0-1
     Route: 048
  11. VENLAFAXINE/VENLAFAXINE HYDROCHLORIDE [Concomitant]
     Dosage: 150 MG, 1 1/2-0-0, SUSTAINED RELEASE CAPSULES
     Route: 048
  12. URAPIDIL [Concomitant]
     Active Substance: URAPIDIL
     Dosage: 60 MG, 1/2-1/2-1/2, SUSTAINED RELEASE CAPSULES
     Route: 048
  13. PIPERACILLIN/TAZOBACTAM [Concomitant]
     Dosage: 4 IS TO 0.5 G, 1-0-1
  14. HYDROCHLOROTHIAZIDE. [Suspect]
     Active Substance: HYDROCHLOROTHIAZIDE
     Indication: PRODUCT USED FOR UNKNOWN INDICATION
     Route: 048
  15. NICOTINE. [Concomitant]
     Active Substance: NICOTINE
     Dosage: 52.5 MG, 1-0-0, PFLASTER TRANSDERMAL
     Route: 048
  16. HEPARIN [Concomitant]
     Active Substance: HEPARIN SODIUM
     Dosage: 7500 IE, 1-0-1
     Route: 058
  17. NALOXONE HYDROCHLORIDE/TILIDINE HYDROCHLORIDE [Concomitant]
     Dosage: 50 IS TO 4 MG, 1-0-1,  SUSTAINED-RELEASE TABLETS
     Route: 048
  18. METOPROLOL. [Concomitant]
     Active Substance: METOPROLOL
     Dosage: 47.5 MG, 1-0-0, SUSTAINED-RELEASE TABLETS
     Route: 048

REACTIONS (3)
  - Medication error [Unknown]
  - Contraindicated product administered [Unknown]
  - Renal impairment [Unknown]

NARRATIVE: CASE EVENT DATE: 20171119
